FAERS Safety Report 19093904 (Version 1)
Quarter: 2021Q2

REPORT INFORMATION
  Report Type: Report from Study
  Country: US (occurrence: US)
  Receive Date: 20210405
  Receipt Date: 20210405
  Transmission Date: 20210717
  Serious: Yes (Death, Hospitalization, Other)
  Sender: FDA-Public Use
  Company Number: US-TAKEDA-US202005378

PATIENT
  Age: 17 Year
  Sex: Male

DRUGS (1)
  1. IDURSULFASE [Suspect]
     Active Substance: IDURSULFASE
     Indication: PRODUCT USED FOR UNKNOWN INDICATION
     Dosage: 24 MILLIGRAM, 1/WEEK
     Route: 042
     Dates: start: 201603

REACTIONS (5)
  - Post procedural complication [Unknown]
  - Pyrexia [Unknown]
  - Death [Fatal]
  - Infection [Unknown]
  - Shunt malfunction [Unknown]

NARRATIVE: CASE EVENT DATE: 20200126
